FAERS Safety Report 4354342-9 (Version None)
Quarter: 2004Q2

REPORT INFORMATION
  Report Type: 
  Country: None (occurrence: None)
  Receive Date: 20040503
  Receipt Date: 20040416
  Transmission Date: 20050107
  Serious: Yes (Other)
  Sender: FDA-Public Use
  Company Number: SUS1-2004-00253

PATIENT
  Age: 47 Year
  Sex: Female

DRUGS (2)
  1. CARBATROL [Suspect]
     Indication: BIPOLAR DISORDER
     Dosage: 800 MG
  2. DILTIAZEM [Suspect]
     Dosage: 120 MG/DAY

REACTIONS (13)
  - AGITATION POSTOPERATIVE [None]
  - AORTIC BYPASS [None]
  - ATAXIA [None]
  - CEREBELLAR SYNDROME [None]
  - CONFUSION POSTOPERATIVE [None]
  - DISORIENTATION [None]
  - DRUG INTERACTION [None]
  - DYSARTHRIA [None]
  - MYDRIASIS [None]
  - NEUROTOXICITY [None]
  - OPHTHALMOPLEGIA [None]
  - POST PROCEDURAL COMPLICATION [None]
  - SINUS TACHYCARDIA [None]
